FAERS Safety Report 8396799-2 (Version None)
Quarter: 2012Q2

REPORT INFORMATION
  Report Type: 
  Country: None (occurrence: None)
  Receive Date: 20120530
  Receipt Date: 20120522
  Transmission Date: 20120825
  Serious: Yes (Death)
  Sender: FDA-Public Use
  Company Number: US-PFIZER INC-IDA-00481

PATIENT
  Age: 65 Year
  Sex: Male

DRUGS (8)
  1. VENLAFAXINE [Suspect]
     Dosage: UNK
     Route: 048
  2. LAMOTRIGINE [Suspect]
     Dosage: UNK
     Route: 048
  3. ACETAMINOPHEN [Suspect]
     Dosage: UNK
     Route: 048
  4. ALPRAZOLAM [Suspect]
     Dosage: UNK
     Route: 048
  5. PROPRANOLOL HCL [Suspect]
     Dosage: UNK
     Route: 048
  6. MODAFINIL [Suspect]
     Dosage: UNK
     Route: 048
  7. DOXEPIN [Suspect]
     Dosage: UNK
     Route: 048
  8. WARFARIN [Suspect]
     Dosage: UNK
     Route: 048

REACTIONS (3)
  - TOXICITY TO VARIOUS AGENTS [None]
  - COMPLETED SUICIDE [None]
  - CARDIO-RESPIRATORY ARREST [None]
